FAERS Safety Report 7069405-7 (Version None)
Quarter: 2010Q4

REPORT INFORMATION
  Report Type: 
  Country: None (occurrence: None)
  Receive Date: 20101028
  Receipt Date: 20101017
  Transmission Date: 20110411
  Serious: Yes (Other)
  Sender: FDA-Public Use
  Company Number: IL-AMGEN-KDL443282

PATIENT

DRUGS (2)
  1. ENBREL [Suspect]
     Indication: RHEUMATOID ARTHRITIS
     Dosage: UNK UNK, UNK
     Dates: start: 20070601
  2. ENBREL [Suspect]
     Dosage: UNKNOWN
     Dates: start: 20070601

REACTIONS (4)
  - DRUG INEFFECTIVE [None]
  - HERPES ZOSTER [None]
  - PSORIASIS [None]
  - RHEUMATOID ARTHRITIS [None]
